FAERS Safety Report 19888362 (Version 1)
Quarter: 2021Q3

REPORT INFORMATION
  Report Type: Spontaneous
  Country: IN (occurrence: IN)
  Receive Date: 20210927
  Receipt Date: 20210927
  Transmission Date: 20211014
  Serious: Yes (Hospitalization, Other)
  Sender: FDA-Public Use
  Company Number: IN-PFIZER INC-202101206026

PATIENT
  Age: 70 Year
  Sex: Male

DRUGS (6)
  1. MET XL [Concomitant]
     Dosage: 25 MG, 1X/DAY (AFTER FOOD) TO BE CONTINUED TILL FURTHER ADVISE
  2. SHELCAL [Concomitant]
     Active Substance: CALCIUM CARBONATE\CHOLECALCIFEROL
     Dosage: 500 MG 0?1?0 DAILY
  3. DACOMITINIB [Suspect]
     Active Substance: DACOMITINIB
     Dosage: 30 MG (MONDAY TO THURSDAY) X CONTINUE AS ADVISED
  4. CRIZALK [Suspect]
     Active Substance: CRIZOTINIB
     Indication: ALK GENE REARRANGEMENT POSITIVE
     Dosage: 250 MG, 2X/DAY 0?0?1 (MONDAY TO THURSDAY) X CONTINUE AS ADVISED
     Route: 048
     Dates: start: 20210410
  5. FLECAINIDE [Concomitant]
     Active Substance: FLECAINIDE
     Dosage: 100 MG, 2X/DAY, 1?0?1 (AFTER FOOD) TO BE CONTINUED TILL FURTHER ADVISE
  6. NEUROBION FORTE [Concomitant]
     Active Substance: CYANOCOBALAMIN\PYRIDOXINE HYDROCHLORIDE\THIAMINE DISULFIDE
     Dosage: 1?0?0 DAILY

REACTIONS (5)
  - Pain [Recovering/Resolving]
  - Atrial fibrillation [Unknown]
  - Fatigue [Recovering/Resolving]
  - Hypertension [Unknown]
  - Cough [Recovering/Resolving]
